FAERS Safety Report 9486451 (Version 2)
Quarter: 2015Q4

REPORT INFORMATION
  Report Type: Report from Study
  Country: US (occurrence: US)
  Receive Date: 20130829
  Receipt Date: 20151019
  Transmission Date: 20160305
  Serious: Yes (Other)
  Sender: FDA-Public Use
  Company Number: US-ROCHE-1266322

PATIENT
  Age: 64 Year
  Sex: Male

DRUGS (28)
  1. HERCEPTIN [Suspect]
     Active Substance: TRASTUZUMAB
     Route: 042
  2. HERCEPTIN [Suspect]
     Active Substance: TRASTUZUMAB
     Route: 042
  3. TAXOL [Concomitant]
     Active Substance: PACLITAXEL
     Route: 042
  4. TAXOTERE [Concomitant]
     Active Substance: DOCETAXEL
  5. VASOTEC [Concomitant]
     Active Substance: ENALAPRIL MALEATE
     Route: 065
  6. MEGACE [Concomitant]
     Active Substance: MEGESTROL ACETATE
     Route: 048
  7. TAXOL [Concomitant]
     Active Substance: PACLITAXEL
     Route: 042
  8. HERCEPTIN [Suspect]
     Active Substance: TRASTUZUMAB
     Route: 042
  9. HERCEPTIN [Suspect]
     Active Substance: TRASTUZUMAB
     Route: 042
  10. HERCEPTIN [Suspect]
     Active Substance: TRASTUZUMAB
     Route: 042
  11. HERCEPTIN [Suspect]
     Active Substance: TRASTUZUMAB
     Route: 042
  12. HERCEPTIN [Suspect]
     Active Substance: TRASTUZUMAB
     Route: 042
  13. XELODA [Suspect]
     Active Substance: CAPECITABINE
     Indication: SALIVARY GLAND CANCER
  14. LANTUS [Concomitant]
     Active Substance: INSULIN GLARGINE
     Dosage: AT BED TIME
     Route: 065
  15. TAXOL [Concomitant]
     Active Substance: PACLITAXEL
     Route: 042
  16. HERCEPTIN [Suspect]
     Active Substance: TRASTUZUMAB
     Indication: SALIVARY GLAND CANCER
     Route: 042
     Dates: start: 201012
  17. HERCEPTIN [Suspect]
     Active Substance: TRASTUZUMAB
     Route: 042
  18. LACTULOSE. [Concomitant]
     Active Substance: LACTULOSE
     Dosage: IF NEEDED.
     Route: 065
  19. HERCEPTIN [Suspect]
     Active Substance: TRASTUZUMAB
     Route: 042
  20. METFORMIN [Concomitant]
     Active Substance: METFORMIN HYDROCHLORIDE
     Route: 065
  21. HERCEPTIN [Suspect]
     Active Substance: TRASTUZUMAB
     Route: 042
  22. HERCEPTIN [Suspect]
     Active Substance: TRASTUZUMAB
     Route: 042
  23. MIRALAX [Concomitant]
     Active Substance: POLYETHYLENE GLYCOL 3350
     Dosage: IF NEEDED.
     Route: 065
  24. HERCEPTIN [Suspect]
     Active Substance: TRASTUZUMAB
     Indication: METASTATIC SALIVARY GLAND CANCER
     Route: 042
  25. HERCEPTIN [Suspect]
     Active Substance: TRASTUZUMAB
     Route: 042
  26. XELODA [Suspect]
     Active Substance: CAPECITABINE
     Indication: METASTATIC SALIVARY GLAND CANCER
     Dosage: ON 14 DAYS OFF 7 DAYS
     Route: 065
  27. TAXOL [Concomitant]
     Active Substance: PACLITAXEL
     Route: 042
  28. COLACE [Concomitant]
     Active Substance: DOCUSATE SODIUM

REACTIONS (16)
  - Metastases to liver [Unknown]
  - Early satiety [Unknown]
  - Dysgeusia [Unknown]
  - Disease progression [Unknown]
  - Adrenal neoplasm [Unknown]
  - Pain in extremity [Unknown]
  - Drug intolerance [Unknown]
  - Neuropathy peripheral [Unknown]
  - Diarrhoea [Unknown]
  - Erythema [Unknown]
  - Fatigue [Unknown]
  - Retroperitoneal lymphadenopathy [Unknown]
  - Abdominal pain [Unknown]
  - Salivary gland cancer [Unknown]
  - Metastases to lymph nodes [Unknown]
  - Constipation [Unknown]

NARRATIVE: CASE EVENT DATE: 20130722
